FAERS Safety Report 10434342 (Version 3)
Quarter: 2015Q3

REPORT INFORMATION
  Report Type: Report from Study
  Country: AU (occurrence: AU)
  Receive Date: 20140905
  Receipt Date: 20150824
  Transmission Date: 20151125
  Serious: Yes (Hospitalization)
  Sender: FDA-Public Use
  Company Number: PHHY2014AU112598

PATIENT
  Sex: Male

DRUGS (2)
  1. CLOZARIL [Suspect]
     Active Substance: CLOZAPINE
     Indication: SCHIZOPHRENIA
     Dosage: 225 OT
     Route: 048
     Dates: start: 20050630
  2. CLOZARIL [Suspect]
     Active Substance: CLOZAPINE
     Dosage: 400 OT
     Route: 048
     Dates: start: 20150619

REACTIONS (1)
  - Schizophrenia, paranoid type [Unknown]
